FAERS Safety Report 6744469-6 (Version None)
Quarter: 2010Q2

REPORT INFORMATION
  Report Type: 
  Country: None (occurrence: None)
  Receive Date: 20100527
  Receipt Date: 20100524
  Transmission Date: 20101027
  Serious: Yes (Hospitalization)
  Sender: FDA-Public Use
  Company Number: IT-BRISTOL-MYERS SQUIBB COMPANY-15045024

PATIENT
  Age: 59 Year
  Sex: Female

DRUGS (13)
  1. VEPESID [Suspect]
     Indication: NON-HODGKIN'S LYMPHOMA
     Route: 042
     Dates: start: 20091114, end: 20091117
  2. BICNU PWDR FOR INJ [Suspect]
     Indication: NON-HODGKIN'S LYMPHOMA
     Dosage: CARMUSTIN INJECTABLE SOLUTION
     Route: 042
     Dates: start: 20091113
  3. CYTARABINE [Suspect]
     Indication: NON-HODGKIN'S LYMPHOMA
     Dosage: ARACYTIN 500MG/10ML POWDER AND SOLVENT FOR INJECTABLE SOLUTION
     Route: 042
     Dates: start: 20091114, end: 20091117
  4. ALKERAN [Suspect]
     Indication: NON-HODGKIN'S LYMPHOMA
     Dosage: ALKERAN 50MG/10ML POWDER AND SOLVENT FOR INJECTABLE SOLUTION
     Route: 042
     Dates: start: 20091118
  5. DECADRONE [Concomitant]
     Dosage: 1DF: 4MG/1ML INJECTABLE SOLUTION
     Route: 042
  6. LEVOXACIN [Concomitant]
     Dosage: 500MG FILM COATED ORAL TABS
     Route: 048
  7. MEPRAL [Concomitant]
     Dosage: 20MG MODIFIED RELEASE ORAL CAPS
     Route: 048
  8. SPORANOX [Concomitant]
     Dosage: SPORANOX 100MG ORAL CAPS
     Route: 048
  9. ZOVIRAX [Concomitant]
     Dosage: 400MG ORAL CAPS
     Route: 048
  10. LYRICA [Concomitant]
     Dosage: 150MG ORAL CAPS
     Route: 048
  11. FUNGIZONE [Concomitant]
     Dosage: 50MG POWDER FOR INFUSION SOLUTION
  12. BREVA [Concomitant]
     Dosage: OS SOLUTION FOR AEROSOL 15ML
     Route: 048
  13. DURAGESIC-100 [Concomitant]
     Dosage: TRANSDERMAL PATCH
     Route: 062

REACTIONS (2)
  - PNEUMONITIS [None]
  - PSEUDOMONAL SEPSIS [None]
